FAERS Safety Report 12517696 (Version 1)
Quarter: 2016Q2

REPORT INFORMATION
  Report Type: Spontaneous
  Country: US (occurrence: US)
  Receive Date: 20160630
  Receipt Date: 20160630
  Transmission Date: 20160815
  Serious: Yes (Hospitalization, Other)
  Sender: FDA-Public Use
  Company Number: US-GLAXOSMITHKLINE-US2016092045

PATIENT
  Age: 57 Year
  Sex: Female

DRUGS (7)
  1. PLAQUENIL [Concomitant]
     Active Substance: HYDROXYCHLOROQUINE SULFATE
  2. FELODIPINE. [Concomitant]
     Active Substance: FELODIPINE
  3. FUROSEMIDE. [Concomitant]
     Active Substance: FUROSEMIDE
  4. LISINOPRIL. [Concomitant]
     Active Substance: LISINOPRIL
  5. ZOLOFT [Concomitant]
     Active Substance: SERTRALINE HYDROCHLORIDE
  6. BENLYSTA [Suspect]
     Active Substance: BELIMUMAB
     Indication: PRODUCT USED FOR UNKNOWN INDICATION
     Dosage: UNK
     Dates: start: 2004
  7. CALCIUM [Concomitant]
     Active Substance: CALCIUM

REACTIONS (1)
  - Knee arthroplasty [Recovering/Resolving]

NARRATIVE: CASE EVENT DATE: 20160621
